FAERS Safety Report 16422428 (Version 1)
Quarter: 2019Q2

REPORT INFORMATION
  Report Type: Report from Study
  Country: US (occurrence: US)
  Receive Date: 20190612
  Receipt Date: 20190612
  Transmission Date: 20190711
  Serious: Yes (Hospitalization)
  Sender: FDA-Public Use
  Company Number: US-BAUSCH-BL-2019-016707

PATIENT
  Sex: Male
  Weight: 79.45 kg

DRUGS (2)
  1. DEMSER [Suspect]
     Active Substance: METYROSINE
     Indication: OFF LABEL USE
     Dosage: RESTARTED IN 2016 OR 2017
     Route: 048
  2. DEMSER [Suspect]
     Active Substance: METYROSINE
     Indication: PSYCHOTIC DISORDER
     Dosage: SOMETIME BETWEEN 2012 AND 2014
     Route: 048

REACTIONS (3)
  - Mental disorder [Unknown]
  - Drug effective for unapproved indication [Unknown]
  - Off label use [Unknown]
